FAERS Safety Report 25410942 (Version 1)
Quarter: 2025Q2

REPORT INFORMATION
  Report Type: Report from Study
  Country: US (occurrence: US)
  Receive Date: 20250609
  Receipt Date: 20250609
  Transmission Date: 20250717
  Serious: No
  Sender: ACADIA PHARMACEUTICALS
  Company Number: US-ACADIA PHARMACEUTICALS INC.-ACA-2025-PIM-006667

PATIENT
  Age: 81 Year
  Sex: Male

DRUGS (27)
  1. NUPLAZID [Suspect]
     Active Substance: PIMAVANSERIN TARTRATE
     Indication: Parkinson^s disease
     Dosage: 34 MILLIGRAM, QD
     Route: 048
     Dates: start: 20230608
  2. RIVASTIGMINE [Concomitant]
     Active Substance: RIVASTIGMINE
  3. LEVOTHYROXINE [Concomitant]
     Active Substance: LEVOTHYROXINE
  4. FEBUXOSTAT [Concomitant]
     Active Substance: FEBUXOSTAT
  5. LIPITOR [Concomitant]
     Active Substance: ATORVASTATIN CALCIUM
  6. ZETIA [Concomitant]
     Active Substance: EZETIMIBE
  7. CYMBALTA [Concomitant]
     Active Substance: DULOXETINE HYDROCHLORIDE
  8. MEMANTINE [Concomitant]
     Active Substance: MEMANTINE
  9. PLAVIX [Concomitant]
     Active Substance: CLOPIDOGREL BISULFATE
  10. LISINOPRIL [Concomitant]
     Active Substance: LISINOPRIL
  11. VITAMINS [Concomitant]
     Active Substance: VITAMINS
  12. LASIX [Concomitant]
     Active Substance: FUROSEMIDE
  13. POTASSIUM [Concomitant]
     Active Substance: POTASSIUM
  14. OMEGA-3 FATTY ACIDS [Concomitant]
     Active Substance: OMEGA-3 FATTY ACIDS
  15. COENZYME Q10 [Concomitant]
     Active Substance: DIETARY SUPPLEMENT\UBIDECARENONE
  16. GLUCOSAMINE [Concomitant]
     Active Substance: GLUCOSAMINE
  17. DAILY FIBER X [Concomitant]
  18. DOCUSATE [Concomitant]
     Active Substance: DOCUSATE
  19. BENEFIBER [Concomitant]
     Active Substance: STARCH, WHEAT
  20. NIACINAMIDE [Concomitant]
     Active Substance: NIACINAMIDE
  21. VITAMIN C [Concomitant]
     Active Substance: ASCORBIC ACID
  22. ZYRTEC [Concomitant]
     Active Substance: CETIRIZINE HYDROCHLORIDE
  23. COMBIGAN [Concomitant]
     Active Substance: BRIMONIDINE TARTRATE\TIMOLOL MALEATE
  24. NEXLETOL [Concomitant]
     Active Substance: BEMPEDOIC ACID
  25. TUMS [Concomitant]
     Active Substance: CALCIUM CARBONATE
  26. LORTAB [Concomitant]
     Active Substance: ACETAMINOPHEN\HYDROCODONE BITARTRATE
  27. FARXIGA [Concomitant]
     Active Substance: DAPAGLIFLOZIN PROPANEDIOL

REACTIONS (3)
  - Intervertebral disc protrusion [Unknown]
  - Back pain [Unknown]
  - Fall [Unknown]

NARRATIVE: CASE EVENT DATE: 20250526
